FAERS Safety Report 8508638-7 (Version None)
Quarter: 2012Q3

REPORT INFORMATION
  Report Type: 
  Country: None (occurrence: None)
  Receive Date: 20120713
  Receipt Date: 20120705
  Transmission Date: 20120928
  Serious: Yes (Other)
  Sender: FDA-Public Use
  Company Number: US-US-EMD SERONO, INC.-7145832

PATIENT
  Sex: Female

DRUGS (2)
  1. LISINOPRIL [Suspect]
     Indication: HYPERTENSION
  2. REBIF [Suspect]
     Indication: PRODUCT USED FOR UNKNOWN INDICATION
     Route: 058
     Dates: start: 20110209

REACTIONS (8)
  - ANXIETY [None]
  - TREMOR [None]
  - DIZZINESS [None]
  - ABNORMAL SENSATION IN EYE [None]
  - LOSS OF CONSCIOUSNESS [None]
  - BLOOD PRESSURE ABNORMAL [None]
  - MUSCULAR WEAKNESS [None]
  - MALAISE [None]
